FAERS Safety Report 8056763-X (Version None)
Quarter: 2012Q1

REPORT INFORMATION
  Report Type: 
  Country: None (occurrence: None)
  Receive Date: 20120119
  Receipt Date: 20120117
  Transmission Date: 20120608
  Serious: Yes (Hospitalization)
  Sender: FDA-Public Use
  Company Number: US-GLAXOSMITHKLINE-A0915597A

PATIENT
  Age: 55 Year
  Sex: Female
  Weight: 131.8 kg

DRUGS (10)
  1. AVANDIA [Suspect]
     Indication: DIABETES MELLITUS
     Dosage: 8MG PER DAY
     Route: 048
     Dates: start: 20050601, end: 20060501
  2. HYZAAR [Concomitant]
  3. HUMALOG [Concomitant]
  4. TRENTAL [Concomitant]
  5. ADVAIR DISKUS 100/50 [Concomitant]
  6. GLUCOPHAGE [Concomitant]
  7. KLONOPIN [Concomitant]
  8. AVANDARYL [Suspect]
     Indication: DIABETES MELLITUS
     Route: 048
     Dates: start: 20060501, end: 20071001
  9. ZOLOFT [Concomitant]
  10. ALBUTEROL [Concomitant]

REACTIONS (4)
  - CARDIOVASCULAR DISORDER [None]
  - CARDIAC DISORDER [None]
  - CEREBROVASCULAR ACCIDENT [None]
  - VIITH NERVE PARALYSIS [None]
